FAERS Safety Report 7145346-1 (Version None)
Quarter: 2010Q4

REPORT INFORMATION
  Report Type: 
  Country: None (occurrence: None)
  Receive Date: 20101122
  Receipt Date: 20101110
  Transmission Date: 20110411
  Serious: Yes (Other)
  Sender: FDA-Public Use
  Company Number: 2010SP059780

PATIENT

DRUGS (1)
  1. MUSCULAX (VECURONIUM BROMDIE /00600002/) [Suspect]
     Indication: NEUROMUSCULAR BLOCKING THERAPY
     Dosage: IV
     Route: 042
     Dates: start: 20101007

REACTIONS (3)
  - ALTERED STATE OF CONSCIOUSNESS [None]
  - QUADRIPLEGIA [None]
  - RENAL FAILURE [None]
